FAERS Safety Report 6153614-5 (Version None)
Quarter: 2009Q2

REPORT INFORMATION
  Report Type: 
  Country: None (occurrence: None)
  Receive Date: 20090409
  Receipt Date: 20090331
  Transmission Date: 20091009
  Serious: Yes (Death)
  Sender: FDA-Public Use
  Company Number: CIP09000598

PATIENT
  Age: 83 Year
  Sex: Female

DRUGS (4)
  1. ACTONEL [Suspect]
     Indication: OSTEOPOROSIS
     Dosage: 1 TABLET CYCLIC DAILY ORAL
     Route: 048
     Dates: start: 20060811, end: 20080801
  2. ACTONEL [Suspect]
     Indication: OSTEOPOROSIS
     Dosage: 1 SACHET CYCLIC DAILY, ORAL
     Route: 048
     Dates: start: 20080801, end: 20081020
  3. DEXA (BETAMETHASONE) [Concomitant]
  4. NEO-MERCAZOLE TAB [Concomitant]

REACTIONS (4)
  - DYSPHAGIA [None]
  - JOINT INJURY [None]
  - ODYNOPHAGIA [None]
  - OESOPHAGEAL ADENOCARCINOMA METASTATIC [None]
